FAERS Safety Report 18116129 (Version 1)
Quarter: 2020Q3

REPORT INFORMATION
  Report Type: Other
  Country: US (occurrence: US)
  Receive Date: 20200806
  Receipt Date: 20200806
  Transmission Date: 20201103
  Serious: Yes (Other)
  Sender: FDA-Public Use
  Company Number: US-ROCHE-2644070

PATIENT
  Age: 46 Year
  Sex: Female
  Weight: 68.1 kg

DRUGS (3)
  1. OCREVUS [Suspect]
     Active Substance: OCRELIZUMAB
     Indication: RELAPSING MULTIPLE SCLEROSIS
     Route: 042
     Dates: start: 2018
  2. OCREVUS [Suspect]
     Active Substance: OCRELIZUMAB
     Route: 042
  3. OCREVUS [Suspect]
     Active Substance: OCRELIZUMAB
     Indication: RELAPSING-REMITTING MULTIPLE SCLEROSIS
     Dosage: DAY 1 AND DAY 15?DATES OF TREATMENT (28/JUN/2019, 28/DEC/2019, 02/JAN/2020, 10/JUL/2020)
     Route: 042
     Dates: start: 20181212

REACTIONS (16)
  - Multiple sclerosis [Unknown]
  - Loss of consciousness [Unknown]
  - Headache [Recovering/Resolving]
  - Memory impairment [Not Recovered/Not Resolved]
  - Photophobia [Recovering/Resolving]
  - Decreased appetite [Unknown]
  - Pain [Unknown]
  - Fatigue [Unknown]
  - Chest discomfort [Recovering/Resolving]
  - Concussion [Unknown]
  - Therapeutic response shortened [Unknown]
  - Back pain [Recovering/Resolving]
  - Muscle spasms [Recovering/Resolving]
  - Hyperacusis [Recovering/Resolving]
  - Fall [Unknown]
  - Pyrexia [Recovered/Resolved]

NARRATIVE: CASE EVENT DATE: 202001
